FAERS Safety Report 12011802 (Version 2)
Quarter: 2016Q1

REPORT INFORMATION
  Report Type: Spontaneous
  Country: DE (occurrence: DE)
  Receive Date: 20160205
  Receipt Date: 20160219
  Transmission Date: 20160526
  Serious: Yes (Other)
  Sender: FDA-Public Use
  Company Number: DE-ACTAVIS-2016-02670

PATIENT
  Age: 28 Year
  Sex: Female

DRUGS (9)
  1. ISONIAZID. [Concomitant]
     Active Substance: ISONIAZID
     Indication: TUBERCULOSIS
     Dosage: UNK
     Route: 065
  2. ABACAVIR. [Concomitant]
     Active Substance: ABACAVIR
     Indication: IMMUNOSUPPRESSION
     Dosage: UNK,18 MONTHS AFTER RENAL TRANSPLANT
     Route: 065
  3. MYCOPHENOLATE MOFETIL (UNKNOWN) [Suspect]
     Active Substance: MYCOPHENOLATE MOFETIL
     Indication: IMMUNOSUPPRESSION
     Dosage: 1000 MG, DAILY
     Route: 065
  4. STAVUDINE. [Concomitant]
     Active Substance: STAVUDINE
     Indication: IMMUNOSUPPRESSION
     Dosage: UNK,18 MONTHS AFTER RENAL TRANSPLANTATION
     Route: 065
  5. TACROLIMUS (UNKNOWN) [Suspect]
     Active Substance: TACROLIMUS
     Indication: IMMUNOSUPPRESSION
     Dosage: 12 MG, DAILY, AT DISCHARGE
     Route: 065
  6. PREDNISOLONE (UNKNOWN) [Suspect]
     Active Substance: PREDNISOLONE
     Indication: IMMUNOSUPPRESSION
     Dosage: 25 MG, DAILY
     Route: 065
  7. PREDNISOLONE (UNKNOWN) [Suspect]
     Active Substance: PREDNISOLONE
     Dosage: 5 MG, DAILY, 3.5 YEARS POST-TRANSPLANT
     Route: 065
  8. TACROLIMUS (UNKNOWN) [Suspect]
     Active Substance: TACROLIMUS
     Dosage: 4 MG, DAILY,3.5 YEARS AFTER POST-TRANSPLANT
  9. ABACAVIR. [Concomitant]
     Active Substance: ABACAVIR
     Dosage: 600 MG, DAILY, AFTER 3.5 YEARS POST-TRANSPLANT
     Route: 065

REACTIONS (1)
  - Nephropathy [Recovering/Resolving]
